FAERS Safety Report 4808727-4 (Version None)
Quarter: 2005Q4

REPORT INFORMATION
  Report Type: 
  Country: None (occurrence: None)
  Receive Date: 20051021
  Receipt Date: 20051021
  Transmission Date: 20060501
  Serious: Yes (Life-Threatening, Hospitalization)
  Sender: FDA-Public Use
  Company Number: None

PATIENT
  Age: 64 Year
  Sex: Female

DRUGS (4)
  1. VISIPAQUE 320 [Suspect]
     Indication: CHEST X-RAY ABNORMAL
     Dosage: 100ML
  2. VISIPAQUE 320 [Suspect]
     Indication: COMPUTERISED TOMOGRAM
     Dosage: 100ML
  3. VISIPAQUE 320 [Suspect]
  4. VISIPAQUE 320 [Suspect]

REACTIONS (7)
  - DYSPNOEA [None]
  - ERYTHEMA [None]
  - HYPERSENSITIVITY [None]
  - HYPOAESTHESIA [None]
  - PHARYNGEAL OEDEMA [None]
  - PRURITUS [None]
  - SNEEZING [None]
